FAERS Safety Report 4448026-6 (Version None)
Quarter: 2004Q3

REPORT INFORMATION
  Report Type: 
  Country: None (occurrence: None)
  Receive Date: 20040817
  Receipt Date: 20040113
  Transmission Date: 20050211
  Serious: Yes (Hospitalization)
  Sender: FDA-Public Use
  Company Number: MEDI-0001262

PATIENT
  Age: 32 Month
  Sex: Female

DRUGS (4)
  1. SYNAGIS [Suspect]
     Indication: ANTIVIRAL PROPHYLAXIS
     Dosage: 200 MG, 1 IN 30 D, INTRA-MUSCULAR
     Route: 030
     Dates: start: 20031023, end: 20031230
  2. PULMICORT [Concomitant]
  3. ALBUTEROL [Concomitant]
  4. ROBINUL (GLYCOPYRRONIUM BROMIDE) [Concomitant]

REACTIONS (1)
  - RESPIRATORY SYNCYTIAL VIRUS INFECTION [None]
